FAERS Safety Report 16758763 (Version 1)
Quarter: 2019Q3

REPORT INFORMATION
  Report Type: Spontaneous
  Country: DE (occurrence: DE)
  Receive Date: 20190830
  Receipt Date: 20190830
  Transmission Date: 20191005
  Serious: Yes (Congenital Anomaly, Other)
  Sender: FDA-Public Use
  Company Number: DE-ALKEM LABORATORIES LIMITED-DE-ALKEM-2016-00846

PATIENT
  Sex: Female
  Weight: 3.48 kg

DRUGS (1)
  1. QUETIAPINE FUMARATE. [Suspect]
     Active Substance: QUETIAPINE FUMARATE
     Dosage: UNKNOWN
     Route: 064
     Dates: end: 20160306

REACTIONS (3)
  - Failure to thrive [Not Recovered/Not Resolved]
  - Hypoacusis [Not Recovered/Not Resolved]
  - Foetal exposure during pregnancy [Unknown]
